FAERS Safety Report 8075637-1 (Version None)
Quarter: 2011Q4

REPORT INFORMATION
  Report Type: 
  Country: None (occurrence: None)
  Receive Date: 20111221
  Receipt Date: 20111007
  Transmission Date: 20120403
  Serious: Yes (Hospitalization)
  Sender: FDA-Public Use
  Company Number: PHEH2007US02392

PATIENT
  Age: 25 Year
  Sex: Female
  Weight: 74.4 kg

DRUGS (4)
  1. EXJADE [Suspect]
     Indication: IRON OVERLOAD
     Dosage: 1250 MG, QD, 1500 MG, QD, ORAL
     Route: 048
     Dates: start: 20110901
  2. EXJADE [Suspect]
     Indication: SICKLE CELL ANAEMIA
     Dosage: 1250 MG, QD, 1500 MG, QD, ORAL
     Route: 048
     Dates: start: 20110901
  3. EXJADE [Suspect]
     Indication: IRON OVERLOAD
     Dosage: 1250 MG, QD, 1500 MG, QD, ORAL
     Route: 048
     Dates: start: 20060622
  4. EXJADE [Suspect]
     Indication: SICKLE CELL ANAEMIA
     Dosage: 1250 MG, QD, 1500 MG, QD, ORAL
     Route: 048
     Dates: start: 20060622

REACTIONS (2)
  - SICKLE CELL ANAEMIA WITH CRISIS [None]
  - BACK PAIN [None]
